FAERS Safety Report 18631113 (Version 1)
Quarter: 2020Q4

REPORT INFORMATION
  Report Type: Spontaneous
  Country: US (occurrence: US)
  Receive Date: 20201217
  Receipt Date: 20201217
  Transmission Date: 20210114
  Serious: No
  Sender: FDA-Public Use
  Company Number: US-ENDO PHARMACEUTICALS INC-2019-110247

PATIENT
  Age: 46 Year
  Sex: Male
  Weight: 97.51 kg

DRUGS (6)
  1. XIAFLEX [Suspect]
     Active Substance: COLLAGENASE CLOSTRIDIUM HISTOLYTICUM
     Indication: PEYRONIE^S DISEASE
     Dosage: UNKNOWN, UNKNOWN; ; CYCLE ONE, INJECTION ONE
     Route: 026
     Dates: start: 20191014
  2. XIAFLEX [Suspect]
     Active Substance: COLLAGENASE CLOSTRIDIUM HISTOLYTICUM
     Dosage: UNK UNKNOWN, UNKNOWNCYCLE TWO, INJECTION TWO
  3. XIAFLEX [Suspect]
     Active Substance: COLLAGENASE CLOSTRIDIUM HISTOLYTICUM
     Dosage: UNK UNKNOWN, UNKNOWNCYCLE TWO, INJECTION ONE
  4. XIAFLEX [Suspect]
     Active Substance: COLLAGENASE CLOSTRIDIUM HISTOLYTICUM
     Dosage: UNK UNKNOWN, UNKNOWN CYCLE THREE, INJECTION ONE
  5. XIAFLEX [Suspect]
     Active Substance: COLLAGENASE CLOSTRIDIUM HISTOLYTICUM
     Dosage: UNK UNKNOWN, UNKNOWN; ; CYCLE ONE, INJECTION TWO
     Route: 026
     Dates: start: 20191024
  6. XIAFLEX [Suspect]
     Active Substance: COLLAGENASE CLOSTRIDIUM HISTOLYTICUM
     Dosage: UNK UNKNOWN, UNKNOWN CYCLE THREE, INJECTION TWO

REACTIONS (6)
  - Penis disorder [Unknown]
  - Penile swelling [Recovered/Resolved]
  - Penile pain [Recovered/Resolved]
  - Inappropriate schedule of product administration [Unknown]
  - Penile contusion [Recovered/Resolved]
  - Rectal prolapse [Unknown]

NARRATIVE: CASE EVENT DATE: 2019
